FAERS Safety Report 10276544 (Version 3)
Quarter: 2014Q3

REPORT INFORMATION
  Report Type: Spontaneous
  Country: US (occurrence: US)
  Receive Date: 20140703
  Receipt Date: 20140925
  Transmission Date: 20150326
  Serious: Yes (Life-Threatening, Hospitalization, Other)
  Sender: FDA-Public Use
  Company Number: US-BAYER-2014-099514

PATIENT
  Age: 35 Year
  Sex: Female
  Weight: 52.79 kg

DRUGS (6)
  1. SYNTHROID [Concomitant]
     Active Substance: LEVOTHYROXINE SODIUM
     Indication: HYPOTHYROIDISM
     Dosage: 150 ?G, UNK
  2. SYNTHROID [Concomitant]
     Active Substance: LEVOTHYROXINE SODIUM
     Indication: HYPOTHYROIDISM
     Dosage: 175 ?G, UNK
     Dates: start: 20130620
  3. LEVOTHYROXINE [Concomitant]
     Active Substance: LEVOTHYROXINE
     Indication: HYPOTHYROIDISM
     Dosage: 100 ?G, UNK
  4. MIRENA [Suspect]
     Active Substance: LEVONORGESTREL
     Indication: CONTRACEPTION
     Dosage: 20 MCG/24HR, CONT
     Route: 015
  5. LEVOTHYROXINE [Concomitant]
     Active Substance: LEVOTHYROXINE
     Indication: HYPOTHYROIDISM
     Dosage: 150 ?G, UNK
     Dates: start: 20120930
  6. MIRENA [Suspect]
     Active Substance: LEVONORGESTREL
     Indication: CONTRACEPTION
     Dosage: 20 MCG/24HR, CONT
     Route: 015
     Dates: start: 20110919, end: 20140625

REACTIONS (31)
  - Anorectal discomfort [None]
  - Abdominal pain lower [None]
  - Medical device discomfort [None]
  - Consciousness fluctuating [None]
  - Complication of device insertion [None]
  - Uterine haemorrhage [Recovered/Resolved]
  - Syncope [Recovering/Resolving]
  - Drug ineffective [None]
  - Vaginal haemorrhage [None]
  - Loss of consciousness [None]
  - Device difficult to use [None]
  - Vaginal haemorrhage [None]
  - Device difficult to use [None]
  - Device breakage [None]
  - Somnolence [Recovering/Resolving]
  - Amenorrhoea [None]
  - Abdominal pain lower [None]
  - Uterine spasm [None]
  - Device difficult to use [None]
  - Presyncope [Recovering/Resolving]
  - Oral discomfort [Recovering/Resolving]
  - Haematocrit decreased [None]
  - Off label use [None]
  - Unresponsive to stimuli [None]
  - Ectopic pregnancy with contraceptive device [None]
  - Amenorrhoea [Recovered/Resolved]
  - Embedded device [Recovered/Resolved]
  - Complication of device removal [None]
  - Ovarian mass [None]
  - Menometrorrhagia [None]
  - Procedural nausea [None]

NARRATIVE: CASE EVENT DATE: 2011
